FAERS Safety Report 23427425 (Version 1)
Quarter: 2024Q1

REPORT INFORMATION
  Report Type: Spontaneous
  Country: US (occurrence: US)
  Receive Date: 20240122
  Receipt Date: 20240122
  Transmission Date: 20240410
  Serious: Yes (Hospitalization, Other)
  Sender: FDA-Public Use
  Company Number: US-SUN PHARMACEUTICAL INDUSTRIES LTD-2024R1-427956

PATIENT
  Age: 23 Year
  Sex: Female

DRUGS (4)
  1. METHIMAZOLE [Suspect]
     Active Substance: METHIMAZOLE
     Indication: Thyroid function test
     Dosage: UNK
     Route: 065
  2. PROPRANOLOL [Suspect]
     Active Substance: PROPRANOLOL HYDROCHLORIDE
     Indication: Thyroid function test
     Dosage: UNK
     Route: 065
  3. THIAMINE [Suspect]
     Active Substance: THIAMINE
     Indication: Dysphagia
     Dosage: UNK
     Route: 065
  4. THIAMINE [Suspect]
     Active Substance: THIAMINE
     Indication: Nystagmus

REACTIONS (3)
  - Exposure during pregnancy [Unknown]
  - Therapy non-responder [Unknown]
  - Live birth [Unknown]
